FAERS Safety Report 10051573 (Version 1)
Quarter: 2014Q2

REPORT INFORMATION
  Report Type: Spontaneous
  Country: FR (occurrence: FR)
  Receive Date: 20140401
  Receipt Date: 20140401
  Transmission Date: 20141212
  Serious: Yes (Other)
  Sender: FDA-Public Use
  Company Number: FR-B.I. PHARMACEUTICALS,INC./RIDGEFIELD-2014-BI-13939GD

PATIENT
  Sex: 0

DRUGS (11)
  1. NEVIRAPINE [Suspect]
     Indication: EXPOSURE DURING PREGNANCY
     Route: 064
  2. NEVIRAPINE [Suspect]
     Indication: PROPHYLAXIS AGAINST HIV INFECTION
     Dosage: 2 MG/KG/WEEK
     Route: 048
  3. RALTEGRAVIR [Suspect]
     Indication: EXPOSURE DURING PREGNANCY
     Route: 064
  4. ZIDOVUDINE [Suspect]
     Indication: EXPOSURE DURING PREGNANCY
     Route: 064
  5. ZIDOVUDINE [Suspect]
     Indication: PROPHYLAXIS AGAINST HIV INFECTION
     Dosage: 2 MG/KG TWICE
     Route: 048
  6. ZIDOVUDINE [Suspect]
     Route: 042
  7. LAMIVUDINE [Suspect]
     Indication: PROPHYLAXIS AGAINST HIV INFECTION
     Route: 048
  8. EMTRICITABINE [Suspect]
     Indication: EXPOSURE DURING PREGNANCY
     Route: 064
  9. DARUNAVIR [Suspect]
     Indication: EXPOSURE DURING PREGNANCY
     Route: 064
  10. RITONAVIR [Suspect]
     Indication: EXPOSURE DURING PREGNANCY
     Route: 064
  11. BETAMETHASONE [Concomitant]
     Indication: EXPOSURE DURING PREGNANCY
     Route: 064

REACTIONS (3)
  - Feeding disorder neonatal [Unknown]
  - Hypoventilation [Unknown]
  - Jaundice [Unknown]
